FAERS Safety Report 9433718 (Version 1)
Quarter: 2013Q3

REPORT INFORMATION
  Report Type: Spontaneous
  Country: DE (occurrence: DE)
  Receive Date: 20130731
  Receipt Date: 20130731
  Transmission Date: 20140515
  Serious: Yes (Other)
  Sender: FDA-Public Use
  Company Number: DE-UCBSA-091615

PATIENT
  Sex: Male

DRUGS (4)
  1. VIMPAT [Suspect]
     Indication: CONVULSION
     Route: 048
     Dates: start: 20130528
  2. VIMPAT [Suspect]
     Indication: STATUS EPILEPTICUS
     Route: 048
     Dates: start: 20130528
  3. VALPROAT [Concomitant]
     Indication: CONVULSION
     Route: 048
     Dates: start: 20130510
  4. KEPPRA [Concomitant]
     Dosage: UNKNOWN DOSE
     Dates: start: 20130102, end: 20130510

REACTIONS (2)
  - Weight decreased [Unknown]
  - Dysgeusia [Recovering/Resolving]
